FAERS Safety Report 6395825-X (Version None)
Quarter: 2009Q4

REPORT INFORMATION
  Report Type: 
  Country: None (occurrence: None)
  Receive Date: 20091009
  Receipt Date: 20090624
  Transmission Date: 20100525
  Serious: No
  Sender: FDA-Public Use
  Company Number: A0793525A

PATIENT
  Sex: Female

DRUGS (2)
  1. TYKERB [Suspect]
     Indication: BREAST CANCER
     Dosage: 2500MG PER DAY
     Route: 048
     Dates: start: 20090624
  2. NO CONCURRENT MEDICATION [Concomitant]

REACTIONS (1)
  - OVERDOSE [None]
